FAERS Safety Report 18025017 (Version 1)
Quarter: 2020Q3

REPORT INFORMATION
  Report Type: Spontaneous
  Country: US (occurrence: US)
  Receive Date: 20200715
  Receipt Date: 20200715
  Transmission Date: 20201103
  Serious: No
  Sender: FDA-Public Use
  Company Number: US-GLAXOSMITHKLINE-US2020121857

PATIENT
  Age: 60 Year
  Sex: Female

DRUGS (1)
  1. NUCALA [Suspect]
     Active Substance: MEPOLIZUMAB
     Dosage: UNK UNK, CYC (ONCE A MONTH)
     Dates: start: 2019

REACTIONS (6)
  - Vitamin E decreased [Unknown]
  - Skin burning sensation [Unknown]
  - Rash erythematous [Not Recovered/Not Resolved]
  - Skin discolouration [Unknown]
  - Social problem [Unknown]
  - Vitamin D decreased [Unknown]

NARRATIVE: CASE EVENT DATE: 202003
